FAERS Safety Report 11969111 (Version 1)
Quarter: 2016Q1

REPORT INFORMATION
  Report Type: Report from Study
  Country: US (occurrence: US)
  Receive Date: 20160128
  Receipt Date: 20160128
  Transmission Date: 20160526
  Serious: No
  Sender: FDA-Public Use
  Company Number: PHEH2015US003433

PATIENT
  Sex: Male

DRUGS (2)
  1. TASIGNA [Suspect]
     Active Substance: NILOTINIB
     Indication: PRODUCT USED FOR UNKNOWN INDICATION
     Dosage: 300 MG
     Route: 065
     Dates: start: 201409
  2. MULTI VITAMIN [Concomitant]
     Active Substance: VITAMINS
     Indication: PRODUCT USED FOR UNKNOWN INDICATION
     Route: 065

REACTIONS (10)
  - Vomiting [Unknown]
  - White blood cell count increased [Unknown]
  - Red blood cell count increased [Unknown]
  - Platelet count decreased [Unknown]
  - Fatigue [Unknown]
  - Discomfort [Unknown]
  - Eating disorder [Unknown]
  - Diarrhoea [Unknown]
  - Muscle tightness [Unknown]
  - Hypersomnia [Unknown]
